FAERS Safety Report 11910516 (Version 1)
Quarter: 2016Q1

REPORT INFORMATION
  Report Type: Spontaneous
  Country: US (occurrence: None)
  Receive Date: 20160111
  Receipt Date: 20160111
  Transmission Date: 20160526
  Serious: Yes (Hospitalization)
  Sender: FDA-Public Use
  Company Number: None

PATIENT
  Age: 77 Year
  Sex: Female
  Weight: 74.5 kg

DRUGS (2)
  1. RITUXIMAB (MOAB C2B8 ANTI CD20, CHIMERIC) [Suspect]
     Active Substance: RITUXIMAB
     Dates: end: 20151207
  2. BENDAMUSTINE HYDROCHLORIDE [Suspect]
     Active Substance: BENDAMUSTINE HYDROCHLORIDE
     Dates: end: 20151208

REACTIONS (10)
  - Pleural effusion [None]
  - Pancytopenia [None]
  - Klebsiella test positive [None]
  - Condition aggravated [None]
  - Infarction [None]
  - Sepsis [None]
  - Febrile neutropenia [None]
  - Aortic stenosis [None]
  - Aortic valve incompetence [None]
  - Ejection fraction decreased [None]

NARRATIVE: CASE EVENT DATE: 20151227
